FAERS Safety Report 7968645-X (Version None)
Quarter: 2011Q4

REPORT INFORMATION
  Report Type: 
  Country: None (occurrence: None)
  Receive Date: 20111209
  Receipt Date: 20111202
  Transmission Date: 20120403
  Serious: Yes (Hospitalization)
  Sender: FDA-Public Use
  Company Number: US-GLAXOSMITHKLINE-A0951394A

PATIENT
  Age: 60 Year
  Sex: Female
  Weight: 50.9 kg

DRUGS (16)
  1. SLOW FE [Concomitant]
     Route: 048
  2. PAZOPANIB [Suspect]
     Indication: GASTROINTESTINAL STROMAL TUMOUR
     Dosage: 800MG PER DAY
     Route: 048
     Dates: start: 20110831, end: 20111026
  3. LORAZEPAM [Concomitant]
     Route: 048
  4. OXYCODONE HCL [Concomitant]
  5. ACETAMINOPHEN [Concomitant]
  6. CITRUCEL [Concomitant]
  7. NEXIUM [Concomitant]
     Route: 048
  8. POTASSIUM ACETATE [Concomitant]
     Route: 048
  9. DIPHENOXYLATE [Concomitant]
  10. IBUPROFEN [Concomitant]
  11. LUNESTA [Concomitant]
     Route: 048
  12. HYDROCHLOROTHIAZIDE [Concomitant]
     Route: 048
  13. FENTANYL-100 [Concomitant]
     Route: 062
  14. PROCHLORPERAZINE [Concomitant]
     Route: 048
  15. VALACYCLOVIR [Concomitant]
  16. ONDANSETRON [Concomitant]
     Route: 048

REACTIONS (1)
  - EMBOLISM [None]
